FAERS Safety Report 5160435-9 (Version None)
Quarter: 2006Q4

REPORT INFORMATION
  Report Type: 
  Country: None (occurrence: None)
  Receive Date: 20061121
  Receipt Date: 20061107
  Transmission Date: 20070319
  Serious: Yes (Other)
  Sender: FDA-Public Use
  Company Number: 2006RR-04466

PATIENT
  Age: 64 Year
  Sex: Male

DRUGS (1)
  1. SIMVASTATIN [Suspect]
     Indication: LIPID METABOLISM DISORDER
     Dosage: 40 MG, QD  ; 20 MG, QD

REACTIONS (2)
  - COGNITIVE DISORDER [None]
  - MEMORY IMPAIRMENT [None]
